FAERS Safety Report 5582854-9 (Version None)
Quarter: 2008Q1

REPORT INFORMATION
  Report Type: 
  Country: None (occurrence: None)
  Receive Date: 20080107
  Receipt Date: 20071224
  Transmission Date: 20080703
  Serious: Yes (Hospitalization)
  Sender: FDA-Public Use
  Company Number: US-KINGPHARMUSA00001-K200701641

PATIENT

DRUGS (1)
  1. ALTACE [Suspect]
     Indication: CARDIAC FAILURE
     Dosage: 10 MG, QD
     Route: 048
     Dates: start: 20070101, end: 20070101

REACTIONS (3)
  - CORNEAL DISORDER [None]
  - EYE IRRITATION [None]
  - PHOTOSENSITIVITY REACTION [None]
